FAERS Safety Report 19464312 (Version 1)
Quarter: 2021Q2

REPORT INFORMATION
  Report Type: Spontaneous
  Country: DE (occurrence: DE)
  Receive Date: 20210627
  Receipt Date: 20210627
  Transmission Date: 20210717
  Serious: Yes (Hospitalization)
  Sender: FDA-Public Use
  Company Number: NVSC2021DE143289

PATIENT
  Age: 79 Year
  Sex: Male

DRUGS (3)
  1. VITAMIN B12 ^RATIOPHARM^ [Concomitant]
     Indication: PRODUCT USED FOR UNKNOWN INDICATION
     Dosage: 200 UG, QD (1?0?0?0, TABLETTEN)
     Route: 048
  2. CIPROFLOXACIN. [Suspect]
     Active Substance: CIPROFLOXACIN
     Indication: PRODUCT USED FOR UNKNOWN INDICATION
     Dosage: 500 MG (TABLETTEN)
     Route: 048
  3. PANTOPRAZOL [Concomitant]
     Active Substance: PANTOPRAZOLE SODIUM
     Indication: PRODUCT USED FOR UNKNOWN INDICATION
     Dosage: 20 MG, QD (1?0?0?0, TABLETTEN)
     Route: 048

REACTIONS (4)
  - Renal impairment [Unknown]
  - Urine odour abnormal [Unknown]
  - Weight decreased [Unknown]
  - Taste disorder [Unknown]
